FAERS Safety Report 7344835-4 (Version None)
Quarter: 2011Q1

REPORT INFORMATION
  Report Type: 
  Country: None (occurrence: None)
  Receive Date: 20110228
  Receipt Date: 20110216
  Transmission Date: 20110831
  Serious: Yes (Hospitalization)
  Sender: FDA-Public Use
  Company Number: MPS1-1000456

PATIENT
  Age: 4 Year
  Sex: Female
  Weight: 15.5 kg

DRUGS (1)
  1. ALDURAZYME [Suspect]
     Indication: MUCOPOLYSACCHARIDOSIS I
     Dosage: 8.7 MG, 1X/W, INTRAVENOUS
     Route: 042
     Dates: start: 20090501

REACTIONS (2)
  - OSTEOMYELITIS [None]
  - DEVICE RELATED INFECTION [None]
